FAERS Safety Report 8501829-0 (Version None)
Quarter: 2012Q3

REPORT INFORMATION
  Report Type: 
  Country: None (occurrence: None)
  Receive Date: 20120705
  Receipt Date: 20120705
  Transmission Date: 20120928
  Serious: Yes (Life-Threatening, Hospitalization)
  Sender: FDA-Public Use
  Company Number: None

PATIENT
  Sex: Female

DRUGS (3)
  1. SEROQUEL [Concomitant]
  2. ABILIFY [Suspect]
     Indication: BIPOLAR DISORDER
     Dosage: ONCE A DAY PO
     Route: 048
     Dates: start: 20120623, end: 20120625
  3. ABILIFY [Suspect]
     Indication: DEPRESSION
     Dosage: ONCE A DAY PO
     Route: 048
     Dates: start: 20120623, end: 20120625

REACTIONS (10)
  - DYSSTASIA [None]
  - DEHYDRATION [None]
  - MOVEMENT DISORDER [None]
  - CONVULSION [None]
  - AMNESIA [None]
  - DYSPHEMIA [None]
  - ABASIA [None]
  - FLUID INTAKE REDUCED [None]
  - DIZZINESS [None]
  - DISORIENTATION [None]
